FAERS Safety Report 11480375 (Version 1)
Quarter: 2015Q3

REPORT INFORMATION
  Report Type: Spontaneous
  Country: US (occurrence: US)
  Receive Date: 20150909
  Receipt Date: 20150909
  Transmission Date: 20151125
  Serious: No
  Sender: FDA-Public Use
  Company Number: US-JAZZ-2014-US-014427

PATIENT
  Age: 68 Year
  Sex: Female
  Weight: 81.63 kg

DRUGS (2)
  1. XYREM [Suspect]
     Active Substance: SODIUM OXYBATE
     Dosage: 2.25 G, QD
     Route: 048
     Dates: start: 20141102, end: 20141102
  2. XYREM [Suspect]
     Active Substance: SODIUM OXYBATE
     Indication: SLEEP DISORDER
     Dosage: 2.25 G, BID
     Route: 048
     Dates: start: 200912, end: 2009

REACTIONS (9)
  - Vomiting [Recovered/Resolved]
  - Decreased appetite [Unknown]
  - Fall [Recovered/Resolved]
  - Dizziness [Recovering/Resolving]
  - Abdominal pain upper [Recovered/Resolved]
  - Product use issue [Unknown]
  - Nausea [Recovered/Resolved]
  - Headache [Recovered/Resolved]
  - Abasia [Not Recovered/Not Resolved]

NARRATIVE: CASE EVENT DATE: 20141102
